FAERS Safety Report 24883885 (Version 2)
Quarter: 2025Q2

REPORT INFORMATION
  Report Type: Report from Study
  Country: CA (occurrence: CA)
  Receive Date: 20250124
  Receipt Date: 20250513
  Transmission Date: 20250716
  Serious: Yes (Other)
  Sender: TEVA
  Company Number: CA-TEVA-VS-3264925

PATIENT
  Age: 50 Year
  Sex: Female

DRUGS (3)
  1. COPAXONE [Suspect]
     Active Substance: GLATIRAMER ACETATE
     Indication: Multiple sclerosis
     Route: 058
     Dates: start: 20241021, end: 202503
  2. DEPAKENE [Concomitant]
     Active Substance: VALPROIC ACID
     Indication: Product used for unknown indication
  3. SYNTHROID [Concomitant]
     Active Substance: LEVOTHYROXINE SODIUM
     Indication: Product used for unknown indication

REACTIONS (17)
  - Clostridium difficile infection [Unknown]
  - Drug ineffective [Unknown]
  - Pain in jaw [Unknown]
  - Device use issue [Unknown]
  - Gait inability [Unknown]
  - Discomfort [Unknown]
  - Feeling abnormal [Recovered/Resolved]
  - Needle issue [Unknown]
  - Near death experience [Unknown]
  - Flushing [Unknown]
  - Hypoaesthesia [Unknown]
  - Neck pain [Unknown]
  - Immediate post-injection reaction [Unknown]
  - Dizziness [Unknown]
  - Nausea [Unknown]
  - Urinary tract infection [Unknown]
  - Gastrointestinal disorder [Unknown]

NARRATIVE: CASE EVENT DATE: 20240101
